FAERS Safety Report 16075472 (Version 1)
Quarter: 2019Q1

REPORT INFORMATION
  Report Type: Spontaneous
  Country: US (occurrence: US)
  Receive Date: 20190315
  Receipt Date: 20190315
  Transmission Date: 20190418
  Serious: Yes (Death, Hospitalization, Other)
  Sender: FDA-Public Use
  Company Number: US-ASTELLAS-2019US009824

PATIENT
  Age: 5 Year
  Sex: Female

DRUGS (6)
  1. PREDNISONE. [Suspect]
     Active Substance: PREDNISONE
     Route: 065
  2. TACROLIMUS. [Suspect]
     Active Substance: TACROLIMUS
     Indication: INTESTINAL TRANSPLANT
     Dosage: UNK UNK, UNKNOWN FREQ. (5-8 NG/ML)
     Route: 065
  3. TACROLIMUS. [Suspect]
     Active Substance: TACROLIMUS
     Dosage: UNK UNK, UNKNOWN FREQ.
     Route: 065
  4. ATG RABBIT [Concomitant]
     Active Substance: LAPINE T-LYMPHOCYTE IMMUNE GLOBULIN
     Indication: INTESTINAL TRANSPLANT
     Dosage: UNK UNK, UNKNOWN FREQ.
     Route: 065
  5. TACROLIMUS. [Suspect]
     Active Substance: TACROLIMUS
     Dosage: UNK UNK, UNKNOWN FREQ. (3-5 NG/ML)
     Route: 065
  6. PREDNISONE. [Suspect]
     Active Substance: PREDNISONE
     Indication: INTESTINAL TRANSPLANT
     Route: 065

REACTIONS (15)
  - Cytomegalovirus viraemia [Unknown]
  - Nephropathy toxic [Unknown]
  - Graft versus host disease in lung [Unknown]
  - Pleural effusion [Unknown]
  - Graft versus host disease in gastrointestinal tract [Unknown]
  - Ill-defined disorder [Unknown]
  - Septic shock [Fatal]
  - Respiratory distress [Unknown]
  - Cytomegalovirus enteritis [Unknown]
  - Product use in unapproved indication [Unknown]
  - Escherichia urinary tract infection [Unknown]
  - Multiple organ dysfunction syndrome [Fatal]
  - Graft versus host disease in skin [Not Recovered/Not Resolved]
  - Parainfluenzae virus infection [Unknown]
  - Pseudomonal bacteraemia [Unknown]
